FAERS Safety Report 5987911-0 (Version None)
Quarter: 2008Q4

REPORT INFORMATION
  Report Type: 
  Country: None (occurrence: None)
  Receive Date: 20081210
  Receipt Date: 20080415
  Transmission Date: 20090506
  Serious: No
  Sender: FDA-Public Use
  Company Number: US-AMGEN-KDL274730

PATIENT
  Sex: Female
  Weight: 108.6 kg

DRUGS (3)
  1. ENBREL [Suspect]
     Indication: RHEUMATOID ARTHRITIS
     Route: 058
     Dates: start: 20070824, end: 20080415
  2. METHOTREXATE [Concomitant]
     Dates: start: 20050101
  3. PLAQUENIL [Concomitant]
     Dates: start: 20040101

REACTIONS (4)
  - CONTUSION [None]
  - DRUG INEFFECTIVE [None]
  - EPISTAXIS [None]
  - RASH MACULAR [None]
